FAERS Safety Report 6502676-1 (Version None)
Quarter: 2009Q4

REPORT INFORMATION
  Report Type: 
  Country: None (occurrence: None)
  Receive Date: 20091127
  Receipt Date: 20090217
  Transmission Date: 20100525
  Serious: Yes (Other)
  Sender: FDA-Public Use
  Company Number: WAES 0902USA03057

PATIENT
  Age: 63 Year
  Sex: Female
  Weight: 66.2252 kg

DRUGS (1)
  1. FOSAMAX [Suspect]
     Indication: OSTEOPOROSIS
     Dosage: 70 MG/PO
     Route: 048
     Dates: start: 20040721, end: 20070201

REACTIONS (9)
  - BONE DISORDER [None]
  - EXOSTOSIS [None]
  - FRACTURE [None]
  - JOINT RANGE OF MOTION DECREASED [None]
  - ORAL CANDIDIASIS [None]
  - ORAL DISORDER [None]
  - ORAL INFECTION [None]
  - OSTEONECROSIS [None]
  - RESORPTION BONE INCREASED [None]
